FAERS Safety Report 9373112 (Version 1)
Quarter: 2013Q2

REPORT INFORMATION
  Report Type: Spontaneous
  Country: FR (occurrence: FR)
  Receive Date: 20130627
  Receipt Date: 20130627
  Transmission Date: 20140414
  Serious: Yes (Other)
  Sender: FDA-Public Use
  Company Number: FR-TEVA-415234ISR

PATIENT
  Sex: Female

DRUGS (1)
  1. LEELOO [Suspect]
     Dosage: DURATION MORE THAN ONE YEAR
     Route: 048

REACTIONS (2)
  - Pregnancy on oral contraceptive [Recovered/Resolved]
  - Abortion induced [Recovered/Resolved with Sequelae]
